FAERS Safety Report 18513200 (Version 32)
Quarter: 2025Q2

REPORT INFORMATION
  Report Type: Report from Study
  Country: CA (occurrence: CA)
  Receive Date: 20201117
  Receipt Date: 20250508
  Transmission Date: 20250717
  Serious: Yes (Hospitalization, Other)
  Sender: TAKEDA
  Company Number: CA-SHIRE-CA202018435AA

PATIENT
  Sex: Male
  Weight: 108 kg

DRUGS (24)
  1. VELAGLUCERASE ALFA [Suspect]
     Active Substance: VELAGLUCERASE ALFA
     Indication: Gaucher^s disease
     Dosage: 11 DOSAGE FORM, Q2WEEKS
     Dates: start: 20130509, end: 20200601
  2. VELAGLUCERASE ALFA [Suspect]
     Active Substance: VELAGLUCERASE ALFA
  3. VELAGLUCERASE ALFA [Suspect]
     Active Substance: VELAGLUCERASE ALFA
     Dosage: 11 DOSAGE FORM, Q2WEEKS
  4. VELAGLUCERASE ALFA [Suspect]
     Active Substance: VELAGLUCERASE ALFA
     Dosage: 11 DOSAGE FORM, 2/WEEK
  5. VELAGLUCERASE ALFA [Suspect]
     Active Substance: VELAGLUCERASE ALFA
     Dosage: 11 DOSAGE FORM, 2/WEEK
  6. VELAGLUCERASE ALFA [Suspect]
     Active Substance: VELAGLUCERASE ALFA
     Dosage: 4400 INTERNATIONAL UNIT, 2/WEEK
  7. VELAGLUCERASE ALFA [Suspect]
     Active Substance: VELAGLUCERASE ALFA
     Dosage: 4400 INTERNATIONAL UNIT, 2/WEEK
  8. VELAGLUCERASE ALFA [Suspect]
     Active Substance: VELAGLUCERASE ALFA
     Dosage: 11 DOSAGE FORM, Q2WEEKS
  9. VELAGLUCERASE ALFA [Suspect]
     Active Substance: VELAGLUCERASE ALFA
     Dosage: 11 INTERNATIONAL UNIT, Q2WEEKS
  10. VELAGLUCERASE ALFA [Suspect]
     Active Substance: VELAGLUCERASE ALFA
     Dosage: 11 INTERNATIONAL UNIT, Q2WEEKS
  11. VELAGLUCERASE ALFA [Suspect]
     Active Substance: VELAGLUCERASE ALFA
     Dosage: 11 DOSAGE FORM, Q2WEEKS
  12. VELAGLUCERASE ALFA [Suspect]
     Active Substance: VELAGLUCERASE ALFA
     Dosage: 11 DOSAGE FORM, Q2WEEKS
  13. VELAGLUCERASE ALFA [Suspect]
     Active Substance: VELAGLUCERASE ALFA
     Dosage: UNK UNK, Q2WEEKS
  14. VELAGLUCERASE ALFA [Suspect]
     Active Substance: VELAGLUCERASE ALFA
     Dosage: UNK UNK, Q2WEEKS
  15. VELAGLUCERASE ALFA [Suspect]
     Active Substance: VELAGLUCERASE ALFA
     Dosage: UNK UNK, Q2WEEKS
  16. VELAGLUCERASE ALFA [Suspect]
     Active Substance: VELAGLUCERASE ALFA
  17. VELAGLUCERASE ALFA [Suspect]
     Active Substance: VELAGLUCERASE ALFA
     Dosage: 11 DOSAGE FORM, Q2WEEKS
  18. VELAGLUCERASE ALFA [Suspect]
     Active Substance: VELAGLUCERASE ALFA
     Dosage: 11 DOSAGE FORM, Q2WEEKS
  19. VELAGLUCERASE ALFA [Suspect]
     Active Substance: VELAGLUCERASE ALFA
     Dosage: 11 DOSAGE FORM, Q2WEEKS
  20. VELAGLUCERASE ALFA [Suspect]
     Active Substance: VELAGLUCERASE ALFA
     Dosage: 4400 INTERNATIONAL UNIT, Q2WEEKS
  21. VELAGLUCERASE ALFA [Suspect]
     Active Substance: VELAGLUCERASE ALFA
     Dosage: UNK UNK, Q2WEEKS
  22. VELAGLUCERASE ALFA [Suspect]
     Active Substance: VELAGLUCERASE ALFA
     Dosage: 4400 INTERNATIONAL UNIT, Q2WEEKS
  23. VELAGLUCERASE ALFA [Suspect]
     Active Substance: VELAGLUCERASE ALFA
     Dosage: 4400 INTERNATIONAL UNIT, Q2WEEKS
  24. VELAGLUCERASE ALFA [Suspect]
     Active Substance: VELAGLUCERASE ALFA
     Dosage: 4400 INTERNATIONAL UNIT, Q2WEEKS

REACTIONS (29)
  - COVID-19 [Unknown]
  - Amyotrophic lateral sclerosis [Not Recovered/Not Resolved]
  - Fall [Unknown]
  - Joint injury [Unknown]
  - Muscular weakness [Unknown]
  - Balance disorder [Unknown]
  - Diabetes mellitus [Unknown]
  - Dyspnoea [Not Recovered/Not Resolved]
  - Paraesthesia [Unknown]
  - Blood pressure increased [Unknown]
  - Weight fluctuation [Unknown]
  - Skin infection [Recovered/Resolved]
  - Blood glucose abnormal [Unknown]
  - Abscess limb [Recovered/Resolved]
  - Blood pressure fluctuation [Unknown]
  - Blood pressure systolic increased [Recovered/Resolved]
  - Abdominal pain [Not Recovered/Not Resolved]
  - Arthralgia [Recovered/Resolved]
  - Nausea [Not Recovered/Not Resolved]
  - Asthenia [Unknown]
  - Body temperature increased [Recovering/Resolving]
  - Pollakiuria [Recovering/Resolving]
  - Inappropriate schedule of product administration [Unknown]
  - Nasopharyngitis [Recovering/Resolving]
  - Abdominal discomfort [Recovering/Resolving]
  - Urinary tract infection [Unknown]
  - Bone pain [Not Recovered/Not Resolved]
  - Fatigue [Not Recovered/Not Resolved]
  - Pyrexia [Recovering/Resolving]

NARRATIVE: CASE EVENT DATE: 20180101
